FAERS Safety Report 9206345 (Version 1)
Quarter: 2013Q2

REPORT INFORMATION
  Report Type: Spontaneous
  Country: AR (occurrence: None)
  Receive Date: 20130401
  Receipt Date: 20130401
  Transmission Date: 20140414
  Serious: No
  Sender: FDA-Public Use
  Company Number: FK201300950

PATIENT
  Age: 12 Year
  Sex: Female

DRUGS (1)
  1. METHYLPREDNISONE [Suspect]
     Indication: PRECURSOR B-LYMPHOBLASTIC LYMPHOMA
     Dosage: 30 MG, (15 MG/M^2/DAY), UNKNOWN

REACTIONS (7)
  - Tumour lysis syndrome [None]
  - Renal failure acute [None]
  - Hypotension [None]
  - Depressed level of consciousness [None]
  - Haemorrhagic diathesis [None]
  - Nephrocalcinosis [None]
  - Peritoneal dialysis [None]
